FAERS Safety Report 14711577 (Version 1)
Quarter: 2018Q2

REPORT INFORMATION
  Report Type: Not Available
  Country: US (occurrence: US)
  Receive Date: 20180403
  Receipt Date: 20180403
  Transmission Date: 20180711
  Serious: No
  Sender: FDA-Public Use
  Company Number: US-NEUROCRINE BIOSCIENCES INC.-2018NBI00268

PATIENT
  Age: 54 Year
  Sex: Female
  Weight: 90.8 kg

DRUGS (3)
  1. VALIUM [Suspect]
     Active Substance: DIAZEPAM
     Indication: PRODUCT USED FOR UNKNOWN INDICATION
     Dates: start: 20180121
  2. INGREZZA [Suspect]
     Active Substance: VALBENAZINE
     Route: 048
     Dates: start: 20180117
  3. INGREZZA [Suspect]
     Active Substance: VALBENAZINE
     Indication: TARDIVE DYSKINESIA
     Route: 048
     Dates: start: 20180112, end: 20180116

REACTIONS (4)
  - Mania [Unknown]
  - Drooling [Unknown]
  - Insomnia [Unknown]
  - Tardive dyskinesia [Unknown]

NARRATIVE: CASE EVENT DATE: 201801
